FAERS Safety Report 9385548 (Version 3)
Quarter: 2013Q4

REPORT INFORMATION
  Report Type: Spontaneous
  Country: US (occurrence: US)
  Receive Date: 20130705
  Receipt Date: 20131021
  Transmission Date: 20140711
  Serious: Yes (Hospitalization)
  Sender: FDA-Public Use
  Company Number: US-GLAXOSMITHKLINE-A1030386A

PATIENT
  Age: 56 Year
  Sex: Female

DRUGS (1)
  1. AVANDIA [Suspect]
     Indication: DIABETES MELLITUS
     Dosage: 4MG TWICE PER DAY
     Route: 048
     Dates: start: 2000, end: 2011

REACTIONS (5)
  - Cerebrovascular accident [Not Recovered/Not Resolved]
  - Quadriplegia [Unknown]
  - Cardiac disorder [Unknown]
  - Paralysis [Unknown]
  - Aphasia [Unknown]
